FAERS Safety Report 7676351-4 (Version None)
Quarter: 2011Q3

REPORT INFORMATION
  Report Type: 
  Country: None (occurrence: None)
  Receive Date: 20110811
  Receipt Date: 20110809
  Transmission Date: 20111222
  Serious: No
  Sender: FDA-Public Use
  Company Number: US-PFIZER INC-2011183169

PATIENT
  Sex: Male
  Weight: 106.5 kg

DRUGS (5)
  1. COUMADIN [Concomitant]
     Indication: CARDIOVASCULAR EVENT PROPHYLAXIS
     Dosage: UNK
  2. TIKOSYN [Suspect]
     Dosage: 0.5 MG, 2X/DAY
     Route: 048
     Dates: start: 20101203, end: 20110601
  3. TIKOSYN [Suspect]
     Indication: ATRIAL FIBRILLATION
     Dosage: 0.125 MG, 2X/DAY
     Route: 048
  4. PINDOLOL [Concomitant]
     Dosage: UNK
  5. TIKOSYN [Suspect]
     Dosage: 0.25 MG, 2X/DAY
     Route: 048
     Dates: start: 20110601

REACTIONS (3)
  - DIZZINESS [None]
  - FATIGUE [None]
  - DYSPNOEA [None]
